FAERS Safety Report 7392772-1 (Version None)
Quarter: 2011Q2

REPORT INFORMATION
  Report Type: 
  Country: None (occurrence: None)
  Receive Date: 20110404
  Receipt Date: 20110328
  Transmission Date: 20111010
  Serious: Yes (Hospitalization, Other)
  Sender: FDA-Public Use
  Company Number: US-PFIZER INC-US-WYE-H17916410

PATIENT
  Sex: Female

DRUGS (12)
  1. CELL CEPT [Concomitant]
     Dosage: 500 MG, 2X/DAY
  2. RAPAMUNE [Suspect]
     Indication: RENAL TRANSPLANT
     Dosage: 2 MG, 1X/DAY
     Route: 048
     Dates: start: 20000101, end: 20100712
  3. COUMADIN [Concomitant]
  4. FOSAMAX [Concomitant]
  5. NIFEREX [Concomitant]
  6. SENNA [Concomitant]
  7. CALCIUM WITH VITAMIN D [Concomitant]
  8. LASIX [Concomitant]
  9. LANTUS [Concomitant]
  10. LIPITOR [Concomitant]
  11. VICODIN [Concomitant]
  12. MILK OF MAGNESIA TAB [Concomitant]

REACTIONS (2)
  - WOUND DEHISCENCE [None]
  - AORTIC VALVE REPLACEMENT [None]
